FAERS Safety Report 7868392-9 (Version None)
Quarter: 2011Q4

REPORT INFORMATION
  Report Type: 
  Country: None (occurrence: None)
  Receive Date: 20111028
  Receipt Date: 20101214
  Transmission Date: 20120403
  Serious: No
  Sender: FDA-Public Use
  Company Number: US-AMGEN-KDL419223

PATIENT
  Age: 48 Year
  Sex: Female

DRUGS (1)
  1. ENBREL [Suspect]
     Indication: RHEUMATOID ARTHRITIS
     Dosage: 50 MG, QWK
     Route: 058
     Dates: start: 20091020

REACTIONS (9)
  - INJECTION SITE PAIN [None]
  - INJECTION SITE HAEMATOMA [None]
  - FLUSHING [None]
  - INJECTION SITE ERYTHEMA [None]
  - MENORRHAGIA [None]
  - ANAEMIA [None]
  - ACNE [None]
  - ALOPECIA [None]
  - RHEUMATOID ARTHRITIS [None]
